FAERS Safety Report 25663730 (Version 1)
Quarter: 2025Q3

REPORT INFORMATION
  Report Type: Spontaneous
  Country: CA (occurrence: CA)
  Receive Date: 20250811
  Receipt Date: 20250811
  Transmission Date: 20251020
  Serious: Yes (Other)
  Sender: JOHNSON AND JOHNSON
  Company Number: CA-JNJFOC-20250810988

PATIENT
  Age: 78 Year
  Sex: Male

DRUGS (3)
  1. USTEKINUMAB [Suspect]
     Active Substance: USTEKINUMAB
     Indication: Colitis ulcerative
     Route: 040
  2. USTEKINUMAB [Suspect]
     Active Substance: USTEKINUMAB
     Indication: Colitis ulcerative
     Route: 058
  3. USTEKINUMAB [Suspect]
     Active Substance: USTEKINUMAB
     Indication: Psoriasis

REACTIONS (5)
  - Bursitis infective [Recovered/Resolved]
  - Retinal detachment [Recovered/Resolved]
  - Lower respiratory tract infection [Recovered/Resolved]
  - Intentional dose omission [Unknown]
  - Intentional product use issue [Unknown]
